FAERS Safety Report 6585647-9 (Version None)
Quarter: 2010Q1

REPORT INFORMATION
  Report Type: 
  Country: None (occurrence: None)
  Receive Date: 20100217
  Receipt Date: 20100208
  Transmission Date: 20100710
  Serious: Yes (Other)
  Sender: FDA-Public Use
  Company Number: AU-PFIZER INC-2010016913

PATIENT
  Age: 59 Year
  Sex: Male

DRUGS (2)
  1. XALATAN [Suspect]
     Indication: OPEN ANGLE GLAUCOMA
     Route: 061
  2. COSOPT [Concomitant]
     Indication: OPEN ANGLE GLAUCOMA

REACTIONS (2)
  - BLINDNESS TRANSIENT [None]
  - CHEST DISCOMFORT [None]
